FAERS Safety Report 9159848 (Version 2)
Quarter: 2013Q2

REPORT INFORMATION
  Report Type: Spontaneous
  Country: US (occurrence: None)
  Receive Date: 20130212
  Receipt Date: 20130408
  Transmission Date: 20140414
  Serious: Yes (Hospitalization)
  Sender: FDA-Public Use
  Company Number: 1302-166

PATIENT
  Age: 24 Year
  Sex: Male

DRUGS (3)
  1. ARCALYST [Suspect]
     Indication: JUVENILE IDIOPATHIC ARTHRITIS
     Route: 058
     Dates: start: 200805
  2. MEDROL (METHYLPREDNISOLONE) [Concomitant]
  3. CYMBALTA(DULOXETINE HDYROCHLORIDE) [Concomitant]

REACTIONS (1)
  - Infectious mononucleosis [None]
